FAERS Safety Report 9620069 (Version 5)
Quarter: 2014Q1

REPORT INFORMATION
  Report Type: Spontaneous
  Country: JP (occurrence: JP)
  Receive Date: 20131014
  Receipt Date: 20140212
  Transmission Date: 20141002
  Serious: Yes (Hospitalization)
  Sender: FDA-Public Use
  Company Number: JP-UCBSA-100079

PATIENT
  Age: 69 Year
  Sex: Male
  Weight: 48 kg

DRUGS (20)
  1. XYZAL [Suspect]
     Indication: PRURITUS GENERALISED
     Route: 048
     Dates: start: 20130827, end: 20130902
  2. PURSENNID [Suspect]
     Indication: CONSTIPATION
     Dosage: UNKNOWN FREQUENCY
     Route: 048
     Dates: start: 20130823, end: 20130903
  3. TAMSULOSIN HYDROCHLORIDE [Suspect]
     Indication: HYPERTONIC BLADDER
     Route: 048
     Dates: start: 201303, end: 20130903
  4. ALLELOCK [Suspect]
     Indication: PRURITUS
     Route: 048
     Dates: start: 201308, end: 20130903
  5. PRIMPERAN [Suspect]
     Indication: VOMITING
     Dosage: UNKNOWN FREQUENCY
     Route: 048
     Dates: start: 20110330, end: 20130903
  6. MAGMITT [Suspect]
     Indication: CONSTIPATION
     Route: 048
     Dates: start: 20070727, end: 20130903
  7. AMLODIN [Suspect]
     Indication: HYPERTENSION
     Route: 048
     Dates: start: 20080114, end: 20130920
  8. SOLANAX [Suspect]
     Indication: NEUROSIS
     Route: 048
     Dates: start: 20040928, end: 20131003
  9. HIRNAMIN [Suspect]
     Indication: NEUROSIS
     Route: 048
     Dates: start: 20130123, end: 20130903
  10. LOXONIN [Suspect]
     Indication: INTERVERTEBRAL DISC PROTRUSION
     Route: 048
     Dates: start: 20100517, end: 20130903
  11. SELBEX [Suspect]
     Indication: INTERVERTEBRAL DISC PROTRUSION
     Route: 048
     Dates: start: 20100517, end: 20130903
  12. POLYFUL [Concomitant]
     Indication: GASTRITIS
     Route: 048
     Dates: start: 20040723
  13. TAKEPRON [Concomitant]
     Indication: GASTRITIS
     Route: 048
     Dates: start: 20040723
  14. MEDETAX [Concomitant]
     Indication: ANXIETY
     Dosage: UNKNOWN FREQUENCY
     Route: 048
  15. HIBON [Concomitant]
     Indication: GLOSSITIS
     Dosage: UNKNOWN FREQUENCY
     Route: 048
     Dates: start: 20121010, end: 20130903
  16. HOKUNALIN [Concomitant]
     Dosage: FORM: PADS, TAPE
     Route: 062
  17. SPIRIVA [Concomitant]
     Dosage: FORM: IH
     Route: 055
  18. AZUNOL [Concomitant]
     Route: 048
  19. MYSLEE [Concomitant]
     Route: 048
  20. SESDEN [Concomitant]
     Indication: GASTRITIS
     Dosage: UNKNOWN FREQUENCY
     Route: 048
     Dates: start: 20050712, end: 20130903

REACTIONS (7)
  - Liver disorder [Recovering/Resolving]
  - Cholestasis [Unknown]
  - Anomalous arrangement of pancreaticobiliary duct [Unknown]
  - Gallbladder polyp [Unknown]
  - Hepatic cyst [Unknown]
  - Renal cyst [Unknown]
  - Hepatic necrosis [Unknown]
